FAERS Safety Report 10445353 (Version 2)
Quarter: 2014Q3

REPORT INFORMATION
  Report Type: Spontaneous
  Country: US (occurrence: US)
  Receive Date: 20140910
  Receipt Date: 20140910
  Transmission Date: 20150326
  Serious: Yes (Hospitalization)
  Sender: FDA-Public Use
  Company Number: US-GLAXOSMITHKLINE-B0693858A

PATIENT
  Age: 52 Year
  Sex: Male

DRUGS (1)
  1. AVANDIA [Suspect]
     Active Substance: ROSIGLITAZONE MALEATE
     Indication: DIABETES MELLITUS
     Dosage: 8MG PER DAY
     Route: 048
     Dates: start: 20060223, end: 200804

REACTIONS (6)
  - Cerebrovascular accident [Unknown]
  - Coronary artery disease [Unknown]
  - Cardiomyopathy [Unknown]
  - Cerebral infarction [Unknown]
  - Cardiac failure congestive [Not Recovered/Not Resolved]
  - Atrial fibrillation [Unknown]

NARRATIVE: CASE EVENT DATE: 20080409
